FAERS Safety Report 26216688 (Version 1)
Quarter: 2025Q4

REPORT INFORMATION
  Report Type: Report from Study
  Country: CA (occurrence: CA)
  Receive Date: 20251231
  Receipt Date: 20251231
  Transmission Date: 20260118
  Serious: Yes (Other)
  Sender: ROCHE
  Company Number: CA-ROCHE-3474538

PATIENT
  Sex: Female

DRUGS (3)
  1. OCREVUS [Suspect]
     Active Substance: OCRELIZUMAB
     Indication: Relapsing-remitting multiple sclerosis
     Dosage: THEN 600 MG EVERY 6 MONTH
     Route: 042
     Dates: start: 20230622
  2. TYLENOL [Concomitant]
     Active Substance: ACETAMINOPHEN
     Dates: start: 20240106, end: 20240107
  3. BACLOFEN [Concomitant]
     Active Substance: BACLOFEN

REACTIONS (2)
  - Infusion related reaction [Unknown]
  - Multiple sclerosis [Unknown]
